FAERS Safety Report 15740485 (Version 1)
Quarter: 2018Q4

REPORT INFORMATION
  Report Type: Spontaneous
  Country: FR (occurrence: FR)
  Receive Date: 20181219
  Receipt Date: 20181219
  Transmission Date: 20190205
  Serious: Yes (Hospitalization, Other)
  Sender: FDA-Public Use
  Company Number: FR-PFIZER INC-2018514195

PATIENT
  Age: 38 Year
  Sex: Female
  Weight: 64 kg

DRUGS (5)
  1. METHOTREXATE BIODIM [Suspect]
     Active Substance: METHOTREXATE
     Indication: HIGH-GRADE B-CELL LYMPHOMA
     Dosage: 120 MG, (8 INJECTIONS)
     Route: 037
     Dates: start: 20180926, end: 20181119
  2. DEPO-MEDROL [Suspect]
     Active Substance: METHYLPREDNISOLONE ACETATE
     Indication: HIGH-GRADE B-CELL LYMPHOMA
     Dosage: 280 MG, UNK
     Route: 037
     Dates: start: 20180926, end: 20181106
  3. CYTARABINE SANDOZ [Suspect]
     Active Substance: CYTARABINE
     Indication: HIGH-GRADE B-CELL LYMPHOMA
     Dosage: 50 MG/M? FOR 12 HOURS + 3000 MG/M? FOR 3 HOUS EVERY DAY
     Route: 041
     Dates: start: 20181110, end: 20181114
  4. ETOPOSIDE MYLAN [Suspect]
     Active Substance: ETOPOSIDE
     Indication: HIGH-GRADE B-CELL LYMPHOMA
     Dosage: 200 MG/M2, 1X/DAY, (4  INFUSIONS OF 350 MG)
     Route: 041
     Dates: start: 20181111, end: 20181114
  5. CYTARABINE EBEWE [Suspect]
     Active Substance: CYTARABINE
     Indication: HIGH-GRADE B-CELL LYMPHOMA
     Dosage: 280 MG, (7 INJECTIONS OF 40 MG)
     Route: 037
     Dates: start: 20180926, end: 20181106

REACTIONS (4)
  - Stomatitis [Recovering/Resolving]
  - Encephalitis [Recovering/Resolving]
  - Product use in unapproved indication [Unknown]
  - Product use issue [Unknown]

NARRATIVE: CASE EVENT DATE: 20180926
